FAERS Safety Report 6870599-4 (Version None)
Quarter: 2010Q3

REPORT INFORMATION
  Report Type: 
  Country: None (occurrence: None)
  Receive Date: 20100723
  Receipt Date: 20100712
  Transmission Date: 20110219
  Serious: Yes (Other)
  Sender: FDA-Public Use
  Company Number: PHHY2010US40209

PATIENT
  Sex: Female

DRUGS (6)
  1. EXJADE [Suspect]
     Dosage: 1250 MG, QD
     Route: 048
  2. COUMADIN [Suspect]
     Indication: CEREBROVASCULAR ACCIDENT
     Dosage: 2 MG DAILY
     Route: 048
  3. CLONIDINE [Concomitant]
     Dosage: 0.1 MG, TID
     Route: 048
  4. FUROSEMIDE [Concomitant]
     Dosage: 20 MG, QD
     Route: 048
  5. ANAGRELIDE HCL [Concomitant]
     Dosage: 0.5 G, BID
  6. TRIHEXYPHENIDYL HCL [Concomitant]
     Dosage: 2.5 MG, QD
     Route: 048

REACTIONS (3)
  - BREAST PROSTHESIS IMPLANTATION [None]
  - DEVICE BREAKAGE [None]
  - HAEMORRHAGE [None]
